FAERS Safety Report 9108209 (Version 11)
Quarter: 2013Q3

REPORT INFORMATION
  Report Type: Spontaneous
  Country: US (occurrence: US)
  Receive Date: 20130221
  Receipt Date: 20130912
  Transmission Date: 20140515
  Serious: No
  Sender: FDA-Public Use
  Company Number: US-009507513-1302USA008779

PATIENT
  Sex: Female
  Weight: 107.48 kg

DRUGS (1)
  1. IMPLANON [Suspect]
     Dosage: UNK
     Route: 059
     Dates: start: 201002

REACTIONS (2)
  - Medical device complication [Unknown]
  - No adverse event [Unknown]
